FAERS Safety Report 10546175 (Version 1)
Quarter: 2014Q4

REPORT INFORMATION
  Report Type: Spontaneous
  Country: US (occurrence: US)
  Receive Date: 20141027
  Receipt Date: 20141027
  Transmission Date: 20150529
  Serious: No
  Sender: FDA-Public Use
  Company Number: US-ABBVIE-14P-163-1211264-00

PATIENT
  Sex: Female

DRUGS (1)
  1. LUPRON DEPOT [Suspect]
     Active Substance: LEUPROLIDE ACETATE
     Indication: ENDOMETRIOSIS
     Dates: start: 2008, end: 2008

REACTIONS (4)
  - Pain [Unknown]
  - Unevaluable event [Unknown]
  - Alopecia [Unknown]
  - Weight increased [Unknown]

NARRATIVE: CASE EVENT DATE: 2008
